FAERS Safety Report 8860020 (Version 1)
Quarter: 2012Q4

REPORT INFORMATION
  Report Type: 
  Country: US (occurrence: US)
  Receive Date: 20121025
  Receipt Date: 20121025
  Transmission Date: 20130627
  Serious: No
  Sender: FDA-Public Use
  Company Number: US-009507513-1210USA001177

PATIENT
  Sex: Female

DRUGS (4)
  1. PEG-INTRON [Suspect]
     Indication: HEPATITIS C
     Dosage: Redipen Peg-Intron
     Dates: start: 20120831, end: 20120928
  2. PEG-INTRON [Suspect]
     Dosage: Vial Peg-Intron
     Dates: start: 20120928
  3. VICTRELIS [Suspect]
     Indication: HEPATITIS C
     Dosage: UNK
     Dates: start: 20120928
  4. RIBAVIRIN [Suspect]
     Indication: HEPATITIS C
     Dosage: UNK
     Dates: start: 20120831

REACTIONS (3)
  - Weight decreased [Unknown]
  - Injection site erythema [Unknown]
  - Decreased appetite [Unknown]
